FAERS Safety Report 6821774-6 (Version None)
Quarter: 2010Q3

REPORT INFORMATION
  Report Type: 
  Country: None (occurrence: None)
  Receive Date: 20100707
  Receipt Date: 20100623
  Transmission Date: 20110219
  Serious: Yes (Hospitalization)
  Sender: FDA-Public Use
  Company Number: DE-MYLANLABS-2010S1011286

PATIENT
  Age: 39 Year
  Sex: Male
  Weight: 88 kg

DRUGS (4)
  1. MIRTAZAPINE [Suspect]
     Indication: SLEEP DISORDER
     Dosage: DAILY DOSE: 15 MG MILLIGRAM(S) EVERY DAY
     Route: 048
     Dates: start: 20100308, end: 20100310
  2. MIRTAZAPINE [Suspect]
     Indication: RESTLESSNESS
     Dosage: DAILY DOSE: 15 MG MILLIGRAM(S) EVERY DAY
     Route: 048
     Dates: start: 20100308, end: 20100310
  3. MIRTAZAPINE [Suspect]
     Dosage: DAILY DOSE: 30 MG MILLIGRAM(S) EVERY DAY
     Route: 048
     Dates: start: 20100311, end: 20100316
  4. MIRTAZAPINE [Suspect]
     Dosage: DAILY DOSE: 30 MG MILLIGRAM(S) EVERY DAY
     Route: 048
     Dates: start: 20100311, end: 20100316

REACTIONS (1)
  - HYPERLIPIDAEMIA [None]
